FAERS Safety Report 20693284 (Version 16)
Quarter: 2024Q3

REPORT INFORMATION
  Report Type: Report from Study
  Country: JP (occurrence: JP)
  Receive Date: 20220410
  Receipt Date: 20240903
  Transmission Date: 20241016
  Serious: Yes (Other)
  Sender: TAKEDA
  Company Number: JP-TAKEDA-2022TJP038176

PATIENT
  Age: 1 Year
  Sex: Female

DRUGS (23)
  1. VELAGLUCERASE ALFA [Suspect]
     Active Substance: VELAGLUCERASE ALFA
     Indication: Gaucher^s disease type II
     Dosage: 800 INTERNATIONAL UNIT, Q2WEEKS
     Route: 042
     Dates: start: 20190719
  2. DEPAKENE [Concomitant]
     Active Substance: VALPROIC ACID
     Indication: Product used for unknown indication
     Dosage: 390 MILLIGRAM
     Route: 048
  3. RIVOTRIL [Concomitant]
     Active Substance: CLONAZEPAM
     Indication: Product used for unknown indication
     Dosage: 2 MILLIGRAM
     Route: 048
  4. ZONISAMIDE [Concomitant]
     Active Substance: ZONISAMIDE
     Indication: Product used for unknown indication
     Dosage: 90 MILLIGRAM
     Route: 048
     Dates: end: 20220605
  5. ZONISAMIDE [Concomitant]
     Active Substance: ZONISAMIDE
     Dosage: 70 MILLIGRAM
     Route: 048
     Dates: start: 20220606, end: 20220703
  6. ZONISAMIDE [Concomitant]
     Active Substance: ZONISAMIDE
     Dosage: 50 MILLIGRAM
     Route: 048
     Dates: start: 20220704, end: 20220731
  7. ZONISAMIDE [Concomitant]
     Active Substance: ZONISAMIDE
     Dosage: 70 MILLIGRAM
     Route: 048
     Dates: start: 20220801, end: 20220828
  8. ZONISAMIDE [Concomitant]
     Active Substance: ZONISAMIDE
     Dosage: 15 MILLIGRAM
     Route: 048
     Dates: start: 20220829, end: 20220925
  9. ZONISAMIDE [Concomitant]
     Active Substance: ZONISAMIDE
     Dosage: 90 MILLIGRAM
     Route: 048
  10. HERBALS\MINERALS\VITAMINS [Concomitant]
     Active Substance: HERBALS\MINERALS\VITAMINS
     Indication: Product used for unknown indication
     Dosage: 15 MILLILITER
     Route: 048
     Dates: end: 20211219
  11. HERBALS\MINERALS\VITAMINS [Concomitant]
     Active Substance: HERBALS\MINERALS\VITAMINS
     Dosage: 18 MILLILITER
     Route: 048
     Dates: start: 20211220
  12. LEVOCARNITINE [Concomitant]
     Active Substance: LEVOCARNITINE
     Indication: Hypocarnitinaemia
     Dosage: 1.5 MILLILITER
     Route: 048
  13. Melatobel [Concomitant]
     Indication: Product used for unknown indication
     Dosage: 2 MILLIGRAM
     Route: 048
  14. LIORESAL [Concomitant]
     Active Substance: BACLOFEN
     Indication: Product used for unknown indication
     Dosage: 10 MILLIGRAM
     Route: 048
  15. MAGNESIUM OXIDE [Concomitant]
     Active Substance: MAGNESIUM OXIDE
     Indication: Product used for unknown indication
     Dosage: 0.4 GRAM
     Route: 048
  16. MAGNESIUM OXIDE [Concomitant]
     Active Substance: MAGNESIUM OXIDE
     Dosage: 0.25 GRAM
     Route: 048
     Dates: start: 20200623, end: 20200630
  17. PHENOBARBITAL [Concomitant]
     Active Substance: PHENOBARBITAL
     Indication: Sedation
     Dosage: 50 MILLIGRAM
     Route: 048
     Dates: start: 20200901, end: 20200923
  18. DIAZEPAM [Concomitant]
     Active Substance: DIAZEPAM
     Indication: Sedation
     Dosage: 5 MILLIGRAM
     Route: 048
     Dates: start: 20200901, end: 20200927
  19. DIETARY SUPPLEMENT\PROBIOTICS [Concomitant]
     Active Substance: DIETARY SUPPLEMENT\PROBIOTICS NOS
     Indication: Prophylaxis against diarrhoea
     Dosage: 2 GRAM
     Route: 048
     Dates: start: 20200901, end: 20200924
  20. DANTRIUM [Concomitant]
     Active Substance: DANTROLENE SODIUM
     Indication: Product used for unknown indication
     Dosage: 9 MILLIGRAM
     Route: 048
     Dates: start: 20220801, end: 20220828
  21. DANTRIUM [Concomitant]
     Active Substance: DANTROLENE SODIUM
     Dosage: 15 MILLIGRAM
     Route: 048
     Dates: start: 20220829
  22. FYCOMPA [Concomitant]
     Active Substance: PERAMPANEL
     Indication: Product used for unknown indication
     Dosage: 0.5 MILLIGRAM
     Route: 048
     Dates: start: 20220926
  23. DIAZEPAM [Concomitant]
     Active Substance: DIAZEPAM
     Indication: Product used for unknown indication
     Dosage: 4 MILLIGRAM
     Route: 054

REACTIONS (18)
  - Femur fracture [Recovering/Resolving]
  - Hypokalaemia [Recovered/Resolved]
  - Epilepsy [Recovering/Resolving]
  - Seizure [Not Recovered/Not Resolved]
  - Epilepsy [Not Recovered/Not Resolved]
  - Tibia fracture [Recovering/Resolving]
  - Hand fracture [Recovering/Resolving]
  - Hand fracture [Recovering/Resolving]
  - Ulna fracture [Recovering/Resolving]
  - Constipation [Recovered/Resolved]
  - Insomnia [Not Recovered/Not Resolved]
  - Hypertonia [Not Recovered/Not Resolved]
  - Urticaria [Recovered/Resolved]
  - Constipation [Recovering/Resolving]
  - Zinc deficiency [Recovering/Resolving]
  - Vitamin D deficiency [Recovering/Resolving]
  - Zinc deficiency [Not Recovered/Not Resolved]
  - Product preparation issue [Unknown]

NARRATIVE: CASE EVENT DATE: 20190801
